FAERS Safety Report 6874371-0 (Version None)
Quarter: 2010Q3

REPORT INFORMATION
  Report Type: 
  Country: None (occurrence: None)
  Receive Date: 20100723
  Receipt Date: 20090602
  Transmission Date: 20110219
  Serious: Yes (Other)
  Sender: FDA-Public Use
  Company Number: US-PFIZER INC-2009205217

PATIENT
  Sex: Female
  Weight: 72.574 kg

DRUGS (13)
  1. CHANTIX [Suspect]
     Indication: SMOKING CESSATION THERAPY
     Dosage: 1 MG, 2X/DAY
     Route: 048
     Dates: start: 20080301
  2. PREDNISONE TAB [Suspect]
     Dosage: UNK
  3. PROZAC [Concomitant]
     Dosage: UNK
  4. PERCOCET [Concomitant]
     Dosage: 10 MG, UNK
  5. OXYCONTIN [Concomitant]
     Dosage: 20 MG, UNK
  6. ZETIA [Concomitant]
     Dosage: 10 MG, UNK
  7. LOMOTIL [Concomitant]
     Dosage: 2.5 MG, UNK
  8. VALTREX [Concomitant]
     Dosage: UNK
  9. WELCHOL [Concomitant]
     Dosage: UNK
  10. MONTELUKAST SODIUM [Concomitant]
     Dosage: UNK
  11. FUROSEMIDE [Concomitant]
     Dosage: UNK
  12. TIZANIDINE [Concomitant]
     Dosage: UNK
  13. IMIPRAMINE [Concomitant]
     Indication: DEPRESSION
     Dosage: UNK

REACTIONS (5)
  - HALLUCINATION [None]
  - HYPERSENSITIVITY [None]
  - NAUSEA [None]
  - NIGHTMARE [None]
  - VOMITING [None]
